FAERS Safety Report 8849861 (Version 2)
Quarter: 2012Q4

REPORT INFORMATION
  Report Type: Report from Study
  Country: US (occurrence: US)
  Receive Date: 20121019
  Receipt Date: 20121030
  Transmission Date: 20130627
  Serious: Yes (Hospitalization)
  Sender: FDA-Public Use
  Company Number: US-TEVA-365537USA

PATIENT
  Age: 71 Year
  Sex: Male
  Weight: 101.24 kg

DRUGS (8)
  1. TREANDA [Suspect]
     Indication: MULTIPLE MYELOMA
     Route: 042
     Dates: start: 20120326, end: 20121016
  2. BORTEZOMIB [Suspect]
     Dates: start: 20120326
  3. DEXAMETHASONE [Suspect]
     Indication: MULTIPLE MYELOMA
     Dates: start: 20120326
  4. ACYCLOVIR [Concomitant]
     Indication: PAIN
  5. FENTANYL [Concomitant]
     Indication: PAIN
  6. PREVACID [Concomitant]
     Indication: DYSPEPSIA
  7. RAPAFLO [Concomitant]
     Indication: BENIGN PROSTATIC HYPERPLASIA
  8. SODIUM PHOSPHATE [Concomitant]
     Dosage: 7.2-2.7 g/15ml

REACTIONS (1)
  - Infusion related reaction [Recovered/Resolved]
